FAERS Safety Report 13783527 (Version 2)
Quarter: 2017Q3

REPORT INFORMATION
  Report Type: Spontaneous
  Country: US (occurrence: US)
  Receive Date: 20170724
  Receipt Date: 20170919
  Transmission Date: 20171127
  Serious: Yes (Other)
  Sender: FDA-Public Use
  Company Number: US-NAPPMUNDI-USA-2017-0139922

PATIENT
  Sex: Male

DRUGS (2)
  1. BETADINE [Suspect]
     Active Substance: POVIDONE-IODINE
     Indication: WOUND
     Dosage: UNK
     Route: 061
  2. STERILE WATER [Concomitant]
     Active Substance: WATER
     Indication: WOUND
     Dosage: UNK
     Route: 061

REACTIONS (1)
  - Cellulitis [Recovered/Resolved]
